FAERS Safety Report 20060698 (Version 1)
Quarter: 2021Q4

REPORT INFORMATION
  Report Type: Spontaneous
  Country: BR (occurrence: BR)
  Receive Date: 20211112
  Receipt Date: 20211112
  Transmission Date: 20220303
  Serious: Yes (Hospitalization)
  Sender: FDA-Public Use
  Company Number: BR-NOVOPROD-863460

PATIENT
  Age: 12 Year
  Sex: Male
  Weight: 28.5 kg

DRUGS (3)
  1. NORDITROPIN [Suspect]
     Active Substance: SOMATROPIN
     Indication: Blood growth hormone abnormal
     Dosage: UNK
     Route: 065
  2. NORDITROPIN [Suspect]
     Active Substance: SOMATROPIN
     Dosage: 1 IU/KG, QW
     Route: 065
  3. NORDITROPIN [Suspect]
     Active Substance: SOMATROPIN
     Dosage: UNK
     Route: 065

REACTIONS (1)
  - Diabetic ketoacidosis [Recovered/Resolved]

NARRATIVE: CASE EVENT DATE: 20200801
